FAERS Safety Report 8265274-8 (Version None)
Quarter: 2012Q2

REPORT INFORMATION
  Report Type: 
  Country: None (occurrence: None)
  Receive Date: 20120406
  Receipt Date: 20120328
  Transmission Date: 20120825
  Serious: Yes (Other)
  Sender: FDA-Public Use
  Company Number: TR-AMGEN-TURSP2012020810

PATIENT
  Age: 58 Year
  Sex: Female

DRUGS (1)
  1. ENBREL [Suspect]
     Indication: RHEUMATOID ARTHRITIS
     Dosage: 25 MG, WEEKLY
     Route: 058
     Dates: start: 20060101

REACTIONS (8)
  - WALKING DISABILITY [None]
  - PARAPLEGIA [None]
  - LUNG NEOPLASM [None]
  - SWELLING [None]
  - DEFORMITY [None]
  - ARTHRITIS [None]
  - JOINT SWELLING [None]
  - INFLAMMATION [None]
